FAERS Safety Report 14170117 (Version 3)
Quarter: 2018Q1

REPORT INFORMATION
  Report Type: Report from Study
  Country: US (occurrence: US)
  Receive Date: 20171108
  Receipt Date: 20180207
  Transmission Date: 20180508
  Serious: Yes (Other)
  Sender: FDA-Public Use
  Company Number: US-BAYER-2017-137304

PATIENT
  Age: 81 Year
  Sex: Male
  Weight: 85.71 kg

DRUGS (26)
  1. CALTRATE WITH VITAMIN D [Concomitant]
     Active Substance: CALCIUM CARBONATE\CHOLECALCIFEROL
  2. METOPROLOL TARTRATE. [Concomitant]
     Active Substance: METOPROLOL TARTRATE
  3. NITROSTAT [Concomitant]
     Active Substance: NITROGLYCERIN
  4. XOFIGO [Suspect]
     Active Substance: RADIUM RA-223 DICHLORIDE
     Indication: PROSTATE CANCER STAGE IV
     Dosage: 128.0 UCI, ONCE EVERY 28 DAYS
     Route: 042
     Dates: start: 20170614, end: 20170614
  5. PNEUMOVAX 23 [Concomitant]
     Active Substance: PNEUMOCOCCAL VACCINE, POLYVALENT 23
     Dosage: UNK
  6. ASPIRIN [ACETYLSALICYLIC ACID] [Concomitant]
     Active Substance: ASPIRIN
     Dosage: UNK
  7. HYDROCODONE [Concomitant]
     Active Substance: HYDROCODONE
  8. XOFIGO [Suspect]
     Active Substance: RADIUM RA-223 DICHLORIDE
     Indication: PROSTATE CANCER STAGE IV
     Dosage: 129.0 ?CI
     Route: 042
     Dates: start: 20070517, end: 20070517
  9. CITALOPRAM HYDROBROMIDE. [Concomitant]
     Active Substance: CITALOPRAM HYDROBROMIDE
  10. XGEVA [Concomitant]
     Active Substance: DENOSUMAB
     Dosage: UNK
  11. ABIRATERONE [Concomitant]
     Active Substance: ABIRATERONE
     Dosage: UNK
  12. LEUPROLIDE ACETATE. [Concomitant]
     Active Substance: LEUPROLIDE ACETATE
     Dosage: UNK
  13. METOPROLOL. [Concomitant]
     Active Substance: METOPROLOL
  14. LEVOTHYROXINE SODIUM. [Concomitant]
     Active Substance: LEVOTHYROXINE SODIUM
  15. ZYTIGA [Concomitant]
     Active Substance: ABIRATERONE ACETATE
     Dosage: 250 MG IN AM AND 250 MG IN PM
  16. LEVOTHYROXINE. [Concomitant]
     Active Substance: LEVOTHYROXINE
  17. PRAVASTATIN. [Concomitant]
     Active Substance: PRAVASTATIN
  18. XOFIGO [Suspect]
     Active Substance: RADIUM RA-223 DICHLORIDE
     Indication: METASTASES TO BONE
     Dosage: 135.0 ?CI
     Route: 042
     Dates: start: 20170419, end: 20170419
  19. ELIGARD [Concomitant]
     Active Substance: LEUPROLIDE ACETATE
  20. PRAVASTATIN SODIUM. [Concomitant]
     Active Substance: PRAVASTATIN SODIUM
  21. PREDNISONE. [Concomitant]
     Active Substance: PREDNISONE
  22. XOFIGO [Suspect]
     Active Substance: RADIUM RA-223 DICHLORIDE
     Indication: PROSTATE CANCER STAGE IV
     Dosage: 137.0 ?CI
     Route: 042
     Dates: start: 20170322, end: 20170322
  23. XARELTO [Concomitant]
     Active Substance: RIVAROXABAN
     Dosage: UNK
  24. ACETAMINOPHEN. [Concomitant]
     Active Substance: ACETAMINOPHEN
  25. NITROGLYCERIN. [Concomitant]
     Active Substance: NITROGLYCERIN
  26. POTASSIUM CHLORIDE. [Concomitant]
     Active Substance: POTASSIUM CHLORIDE

REACTIONS (10)
  - Fatigue [None]
  - Dizziness [None]
  - White blood cell count decreased [None]
  - Diarrhoea [Recovered/Resolved]
  - Anaemia [Not Recovered/Not Resolved]
  - Red blood cell count decreased [None]
  - Neutropenia [None]
  - Pancytopenia [Recovering/Resolving]
  - Platelet count decreased [None]
  - Diarrhoea [None]

NARRATIVE: CASE EVENT DATE: 201707
